FAERS Safety Report 6877076-5 (Version None)
Quarter: 2010Q3

REPORT INFORMATION
  Report Type: 
  Country: None (occurrence: None)
  Receive Date: 20100727
  Receipt Date: 20100727
  Transmission Date: 20110219
  Serious: Yes (Other)
  Sender: FDA-Public Use
  Company Number: None

PATIENT

DRUGS (2)
  1. ACIPHEX [Suspect]
     Indication: GASTRITIS
     Dosage: 20MG B.I.D. BID PO
     Route: 048
     Dates: start: 20091001, end: 20100601
  2. ACIPHEX [Suspect]
     Indication: GASTROOESOPHAGEAL REFLUX DISEASE
     Dosage: 20MG B.I.D. BID PO
     Route: 048
     Dates: start: 20091001, end: 20100601

REACTIONS (1)
  - PRODUCT QUALITY ISSUE [None]
